FAERS Safety Report 23877690 (Version 1)
Quarter: 2024Q2

REPORT INFORMATION
  Report Type: Spontaneous
  Country: FR (occurrence: FR)
  Receive Date: 20240521
  Receipt Date: 20240521
  Transmission Date: 20240716
  Serious: Yes (Hospitalization, Other)
  Sender: FDA-Public Use
  Company Number: FR-SANDOZ-SDZ2024FR048577

PATIENT
  Age: 72 Year
  Sex: Female

DRUGS (13)
  1. BROMAZEPAM [Suspect]
     Active Substance: BROMAZEPAM
     Indication: Product used for unknown indication
     Dosage: 1 DF, QD
     Route: 048
  2. BROMAZEPAM [Suspect]
     Active Substance: BROMAZEPAM
     Dosage: UNK UNK, BID
     Route: 048
  3. PRAVASTATIN [Suspect]
     Active Substance: PRAVASTATIN
     Indication: Product used for unknown indication
     Dosage: 40 MG, QD
     Route: 048
  4. TEGRETOL [Suspect]
     Active Substance: CARBAMAZEPINE
     Indication: Product used for unknown indication
     Dosage: 4 DF, BID (FILM-COATED TABLET)
     Route: 048
  5. BISOPROLOL [Suspect]
     Active Substance: BISOPROLOL\BISOPROLOL FUMARATE
     Indication: Product used for unknown indication
     Dosage: 1 DF, QD
     Route: 048
  6. ZUCLOPENTHIXOL [Suspect]
     Active Substance: ZUCLOPENTHIXOL
     Indication: Product used for unknown indication
     Dosage: 1 DF, QD
     Route: 048
  7. ZONEGRAN [Suspect]
     Active Substance: ZONISAMIDE
     Indication: Product used for unknown indication
     Dosage: 1 DF, TID
     Route: 048
  8. EUPANTOL [Suspect]
     Active Substance: PANTOPRAZOLE SODIUM
     Indication: Product used for unknown indication
     Dosage: 1 DF, QD
     Route: 048
  9. CLOBAZAM [Suspect]
     Active Substance: CLOBAZAM
     Indication: Product used for unknown indication
     Dosage: 1 DF, QD
     Route: 048
  10. ATROPA BELLADONNA\CAFFEINE\PHENOBARBITAL [Suspect]
     Active Substance: ATROPA BELLADONNA\CAFFEINE\PHENOBARBITAL
     Indication: Product used for unknown indication
     Dosage: 15 MG, QD (15 MG X 65 MILLIGRAM, QD)
     Route: 048
  11. ATROPA BELLADONNA\CAFFEINE\PHENOBARBITAL [Suspect]
     Active Substance: ATROPA BELLADONNA\CAFFEINE\PHENOBARBITAL
     Dosage: 50 MG, QD (50 MG X 50 MILLIGRAM, QD)
     Route: 048
  12. ELIQUIS [Suspect]
     Active Substance: APIXABAN
     Indication: Product used for unknown indication
     Dosage: 5 MG, BID
     Route: 065
  13. FERROUS FUMARATE [Concomitant]
     Active Substance: FERROUS FUMARATE
     Indication: Postmenopausal haemorrhage
     Dosage: UNK
     Route: 065

REACTIONS (3)
  - Neutropenia [Not Recovered/Not Resolved]
  - Leukopenia [Unknown]
  - Clostridium difficile infection [Unknown]

NARRATIVE: CASE EVENT DATE: 20240411
